FAERS Safety Report 24660186 (Version 1)
Quarter: 2024Q4

REPORT INFORMATION
  Report Type: Spontaneous
  Country: US (occurrence: None)
  Receive Date: 20241124
  Receipt Date: 20241124
  Transmission Date: 20250115
  Serious: Yes (Other)
  Sender: Public
  Company Number: None

PATIENT
  Age: 32 Year
  Sex: Female
  Weight: 81 kg

DRUGS (2)
  1. ZICAM EXTREME CONGESTION [Suspect]
     Active Substance: OXYMETAZOLINE HYDROCHLORIDE
     Indication: Respiratory tract congestion
     Dosage: 4 SPRAY (S) RESPIRTORY (INHALATION)
     Route: 055
     Dates: start: 20241123, end: 20241123
  2. MUCINEX [Suspect]
     Active Substance: GUAIFENESIN

REACTIONS (10)
  - Rhinalgia [None]
  - Feeling abnormal [None]
  - Asthenia [None]
  - Dizziness [None]
  - Anxiety [None]
  - Tremor [None]
  - Confusional state [None]
  - Somnolence [None]
  - Fatigue [None]
  - Paranoia [None]

NARRATIVE: CASE EVENT DATE: 20241123
